FAERS Safety Report 5818394-9 (Version None)
Quarter: 2008Q3

REPORT INFORMATION
  Report Type: 
  Country: None (occurrence: None)
  Receive Date: 20080722
  Receipt Date: 20080710
  Transmission Date: 20090109
  Serious: Yes (Life-Threatening)
  Sender: FDA-Public Use
  Company Number: GB-PFIZER INC-2008059797

PATIENT
  Sex: Female
  Weight: 73.1 kg

DRUGS (3)
  1. LYRICA [Suspect]
     Route: 048
     Dates: start: 20071115, end: 20080606
  2. VENLAFAXINE HCL [Concomitant]
     Route: 048
  3. CODEINE SUL TAB [Concomitant]
     Route: 048
     Dates: start: 20070709

REACTIONS (7)
  - ANXIETY [None]
  - COMPLEX REGIONAL PAIN SYNDROME [None]
  - CONVERSION DISORDER [None]
  - DELUSIONAL PERCEPTION [None]
  - HALLUCINATION, AUDITORY [None]
  - MOOD SWINGS [None]
  - SUICIDAL IDEATION [None]
